FAERS Safety Report 9558222 (Version 2)
Quarter: 2014Q2

REPORT INFORMATION
  Report Type: Spontaneous
  Country: US (occurrence: US)
  Receive Date: 20130926
  Receipt Date: 20140509
  Transmission Date: 20141212
  Serious: Yes (Hospitalization, Disabling, Other)
  Sender: FDA-Public Use
  Company Number: US-009507513-1309USA012787

PATIENT
  Sex: Male

DRUGS (11)
  1. JANUVIA [Suspect]
     Indication: PRODUCT USED FOR UNKNOWN INDICATION
     Dosage: 100 MG, UNK
     Route: 048
  2. JANUMET [Suspect]
     Dosage: 50-1000 MG,UNK
     Route: 048
  3. ASCORBIC ACID [Concomitant]
     Dosage: 500 MG, UNK
  4. ALTACE [Concomitant]
     Dosage: 5 MG, UNK
  5. LANTUS [Concomitant]
     Indication: DIABETES MELLITUS
     Dosage: 50 UNITS, UNK
  6. TOPROL XL TABLETS [Concomitant]
     Dosage: 25 MG, QD
  7. UBIDECARENONE [Concomitant]
     Dosage: 100 MG, UNK
  8. VITAMIN D (UNSPECIFIED) [Concomitant]
     Dosage: 2 DF, UNK
  9. OMEGA-3 MARINE TRIGLYCERIDES [Concomitant]
     Dosage: 1 DF, UNK
  10. ASPIRIN [Concomitant]
     Dosage: 325 MG, UNK
  11. NIACIN [Concomitant]
     Dosage: 500 MG, UNK

REACTIONS (18)
  - Pancreatic carcinoma metastatic [Unknown]
  - Metastases to liver [Unknown]
  - Coronary artery bypass [Unknown]
  - Coronary artery bypass [Unknown]
  - Postoperative wound infection [Unknown]
  - Adrenal mass [Unknown]
  - Dyspnoea [Unknown]
  - Wheezing [Unknown]
  - Vitamin D deficiency [Unknown]
  - Hypokalaemia [Unknown]
  - Hyperlipidaemia [Unknown]
  - Knee operation [Unknown]
  - Blood magnesium decreased [Unknown]
  - Hyperglycaemia [Unknown]
  - Hypertension [Unknown]
  - Hypoglycaemia [Unknown]
  - Back pain [Recovering/Resolving]
  - Constipation [Unknown]
